FAERS Safety Report 14861753 (Version 1)
Quarter: 2018Q2

REPORT INFORMATION
  Report Type: Spontaneous
  Country: US (occurrence: US)
  Receive Date: 20180508
  Receipt Date: 20180508
  Transmission Date: 20180711
  Serious: No
  Sender: FDA-Public Use
  Company Number: US-VIFOR (INTERNATIONAL) INC.-VIT-2018-00839

PATIENT
  Sex: Male

DRUGS (11)
  1. CALCIUM GLUCONATE. [Concomitant]
     Active Substance: CALCIUM GLUCONATE
  2. CALCIUM + D [Concomitant]
     Active Substance: CALCIUM\VITAMIN D
  3. ASCORBIC ACID. [Concomitant]
     Active Substance: ASCORBIC ACID
  4. ASPIRIN LOW DOSE [Concomitant]
     Active Substance: ASPIRIN
  5. ERGOCALCIFEROL. [Concomitant]
     Active Substance: ERGOCALCIFEROL
  6. COLECALCIFEROL [Concomitant]
     Active Substance: CHOLECALCIFEROL
  7. VELTASSA [Suspect]
     Active Substance: PATIROMER
     Indication: HYPERKALAEMIA
     Route: 048
     Dates: start: 20170602
  8. SIMVASTATIN. [Concomitant]
     Active Substance: SIMVASTATIN
  9. NAMENDA [Concomitant]
     Active Substance: MEMANTINE HYDROCHLORIDE
  10. SODIUM POLYSTYRENE SULFONATE. [Concomitant]
     Active Substance: SODIUM POLYSTYRENE SULFONATE
  11. TOCOPHEROL [Concomitant]
     Active Substance: TOCOPHEROL

REACTIONS (2)
  - Drug dose omission [Unknown]
  - No adverse event [Recovered/Resolved]
